FAERS Safety Report 17132949 (Version 3)
Quarter: 2020Q1

REPORT INFORMATION
  Report Type: Spontaneous
  Country: JP (occurrence: JP)
  Receive Date: 20191210
  Receipt Date: 20200212
  Transmission Date: 20200409
  Serious: Yes (Death, Life-Threatening, Hospitalization, Other)
  Sender: FDA-Public Use
  Company Number: JP-ROCHE-2491604

PATIENT
  Age: 68 Year
  Sex: Female
  Weight: 42 kg

DRUGS (18)
  1. CARBOPLATIN. [Concomitant]
     Active Substance: CARBOPLATIN
     Indication: LUNG ADENOCARCINOMA
     Dosage: DOSAGE IS UNCERTAIN.
     Route: 041
     Dates: start: 20190530, end: 20191001
  2. MAGMITT [Concomitant]
     Active Substance: MAGNESIUM OXIDE
     Dosage: DOSAGE IS UNCERTAIN.
     Route: 048
  3. COLIOPAN [Concomitant]
     Active Substance: BUTROPIUM BROMIDE
     Dosage: DOSAGE IS UNCERTAIN.
     Route: 048
  4. AVASTIN [Suspect]
     Active Substance: BEVACIZUMAB
     Indication: LUNG ADENOCARCINOMA
     Route: 041
     Dates: start: 20190530, end: 20190824
  5. AVASTIN [Suspect]
     Active Substance: BEVACIZUMAB
     Dosage: DOSE REDUCED
     Route: 041
     Dates: start: 20190911, end: 20191001
  6. TECENTRIQ [Suspect]
     Active Substance: ATEZOLIZUMAB
     Indication: LUNG ADENOCARCINOMA
     Route: 041
     Dates: start: 20190530, end: 20190824
  7. JANUVIA [Concomitant]
     Active Substance: SITAGLIPTIN PHOSPHATE
     Dosage: DOSAGE IS UNCERTAIN.
     Route: 048
  8. PAROXETINE. [Concomitant]
     Active Substance: PAROXETINE
     Dosage: DOSAGE IS UNCERTAIN.
     Route: 048
  9. ALPRAZOLAM. [Concomitant]
     Active Substance: ALPRAZOLAM
     Dosage: DOSAGE IS UNCERTAIN.
     Route: 048
  10. PACLITAXEL. [Concomitant]
     Active Substance: PACLITAXEL
     Indication: LUNG ADENOCARCINOMA
     Dosage: DOSAGE IS UNCERTAIN.
     Route: 041
     Dates: start: 20190530, end: 20191001
  11. CALONAL [Concomitant]
     Active Substance: ACETAMINOPHEN
     Dosage: DOSAGE IS UNCERTAIN.
     Route: 048
  12. BENET [Concomitant]
     Active Substance: RISEDRONATE SODIUM
     Dosage: DOSAGE IS UNCERTAIN.
     Route: 048
  13. LAC-B [Concomitant]
     Active Substance: BIFIDOBACTERIUM SPP.
     Dosage: DOSAGE IS UNCERTAIN.
     Route: 048
  14. XYZAL [Concomitant]
     Active Substance: LEVOCETIRIZINE DIHYDROCHLORIDE
     Dosage: DOSAGE IS UNCERTAIN.
     Route: 048
  15. LANSOPRAZOLE. [Concomitant]
     Active Substance: LANSOPRAZOLE
     Dosage: DOSAGE IS UNCERTAIN.
     Route: 048
  16. TRESIBA [Concomitant]
     Active Substance: INSULIN DEGLUDEC
     Dosage: DOSAGE IS UNCERTAIN.
     Route: 065
  17. ASTOMIN [DIMEMORFAN PHOSPHATE] [Concomitant]
     Dosage: DOSAGE IS UNCERTAIN.
     Route: 048
  18. PRAVASTATIN NA [Concomitant]
     Active Substance: PRAVASTATIN SODIUM
     Dosage: DOSAGE IS UNCERTAIN.
     Route: 048

REACTIONS (6)
  - Rectal haemorrhage [Unknown]
  - Colitis ischaemic [Unknown]
  - Cholangitis [Not Recovered/Not Resolved]
  - Shock haemorrhagic [Unknown]
  - Disease progression [Fatal]
  - Sepsis [Fatal]

NARRATIVE: CASE EVENT DATE: 20190808
